FAERS Safety Report 10017372 (Version 3)
Quarter: 2014Q2

REPORT INFORMATION
  Report Type: Spontaneous
  Country: AU (occurrence: AU)
  Receive Date: 20140318
  Receipt Date: 20140429
  Transmission Date: 20141212
  Serious: Yes (Other)
  Sender: FDA-Public Use
  Company Number: AU-JNJFOC-20140310053

PATIENT
  Sex: Male
  Weight: 92 kg

DRUGS (7)
  1. ZYDOL SR 200 [Suspect]
     Indication: ANALGESIC THERAPY
     Route: 048
     Dates: start: 20110418
  2. COVERSYL [Concomitant]
     Indication: BLOOD PRESSURE
     Route: 048
  3. PARIET [Concomitant]
     Indication: GASTROOESOPHAGEAL REFLUX DISEASE
     Route: 065
  4. CRESTOR [Concomitant]
     Indication: HYPERLIPIDAEMIA
     Route: 065
  5. PRIMOTESTON [Concomitant]
     Indication: BLOOD TESTOSTERONE DECREASED
     Route: 065
  6. BACLOFEN [Concomitant]
     Indication: MUSCLE SPASMS
     Route: 065
  7. MINAX [Concomitant]
     Indication: ATRIOVENTRICULAR BLOCK
     Route: 065

REACTIONS (3)
  - Aphasia [Recovered/Resolved]
  - Movement disorder [Recovered/Resolved]
  - Eye movement disorder [Recovered/Resolved]
